FAERS Safety Report 11258359 (Version 1)
Quarter: 2015Q3

REPORT INFORMATION
  Report Type: Spontaneous
  Country: GB (occurrence: GB)
  Receive Date: 20150710
  Receipt Date: 20150710
  Transmission Date: 20151125
  Serious: Yes (Other)
  Sender: FDA-Public Use
  Company Number: GB-TEVA-576444ACC

PATIENT
  Age: 86 Year
  Sex: Male
  Weight: 75 kg

DRUGS (8)
  1. ASPIRIN. [Concomitant]
     Active Substance: ASPIRIN
     Dosage: 2 DOSAGE FORMS DAILY;
     Dates: start: 20131216
  2. MIRTAZAPINE. [Concomitant]
     Active Substance: MIRTAZAPINE
     Dosage: 1 DOSAGE FORMS DAILY; AT NIGHT
     Dates: start: 20140917
  3. OPTIFLO C [Concomitant]
     Dosage: USE AS DIRECTED
     Dates: start: 20150507
  4. RIVAROXABAN [Concomitant]
     Active Substance: RIVAROXABAN
     Indication: ANTICOAGULANT THERAPY
     Dosage: ONE DAILY AS DIRECTED
     Dates: start: 20150626
  5. BISOPROLOL [Concomitant]
     Active Substance: BISOPROLOL
     Dosage: 1 DOSAGE FORMS DAILY;
     Dates: start: 20141128
  6. SIMVASTATIN. [Concomitant]
     Active Substance: SIMVASTATIN
     Dosage: 1 DOSAGE FORMS DAILY; AT NIGHT
     Dates: start: 20150220
  7. WARFARIN [Suspect]
     Active Substance: WARFARIN
     Dates: start: 20150626
  8. SERTRALINE [Concomitant]
     Active Substance: SERTRALINE HYDROCHLORIDE
     Dosage: 1 DOSAGE FORMS DAILY;
     Dates: start: 20150126

REACTIONS (2)
  - Confusional state [Unknown]
  - Balance disorder [Unknown]

NARRATIVE: CASE EVENT DATE: 20150626
